FAERS Safety Report 6001100-5 (Version None)
Quarter: 2008Q4

REPORT INFORMATION
  Report Type: 
  Country: None (occurrence: None)
  Receive Date: 20081215
  Receipt Date: 20081205
  Transmission Date: 20090506
  Serious: Yes (Other)
  Sender: FDA-Public Use
  Company Number: GB-WYE-G02732008

PATIENT
  Age: 10 Year
  Sex: Male

DRUGS (1)
  1. BENEFIX [Suspect]
     Indication: FACTOR IX DEFICIENCY
     Dosage: UNKNOWN
     Dates: start: 20020601

REACTIONS (2)
  - MEDICAL DEVICE COMPLICATION [None]
  - THROMBOSIS [None]
